FAERS Safety Report 7101814-X (Version None)
Quarter: 2010Q4

REPORT INFORMATION
  Report Type: 
  Country: None (occurrence: None)
  Receive Date: 20101115
  Receipt Date: 20101029
  Transmission Date: 20110411
  Serious: Yes (Death)
  Sender: FDA-Public Use
  Company Number: DE-BAYER-201043640GPV

PATIENT
  Age: 57 Year
  Sex: Female
  Weight: 66 kg

DRUGS (3)
  1. SORAFENIB [Suspect]
     Indication: NEOPLASM
     Dosage: TOTAL DAILY DOSE: 400 MG  UNIT DOSE: 200 MG
     Route: 048
     Dates: start: 20100924, end: 20101021
  2. EVEROLIMUS [Suspect]
     Indication: NEOPLASM
     Route: 048
     Dates: start: 20100909, end: 20101021
  3. AMLODIPINE [Concomitant]
     Indication: HYPERTENSION
     Route: 048

REACTIONS (4)
  - ARRHYTHMIA [None]
  - DIARRHOEA [None]
  - LOSS OF CONSCIOUSNESS [None]
  - SUDDEN DEATH [None]
